FAERS Safety Report 5505013-4 (Version None)
Quarter: 2007Q4

REPORT INFORMATION
  Report Type: 
  Country: None (occurrence: None)
  Receive Date: 20071031
  Receipt Date: 20071031
  Transmission Date: 20080405
  Serious: Yes (Hospitalization, Disabling)
  Sender: FDA-Public Use
  Company Number: None

PATIENT
  Sex: Male
  Weight: 108.8633 kg

DRUGS (5)
  1. CIPRO [Suspect]
     Indication: PROSTATOMEGALY
     Dosage: 500MG BID PO X 7 DAYS
     Route: 048
     Dates: start: 19990801
  2. CIPRO [Suspect]
     Indication: URINARY TRACT INFECTION
     Dosage: 500MG BID PO X 7 DAYS
     Route: 048
     Dates: start: 19990801
  3. CIPRO [Suspect]
     Indication: PROSTATITIS
     Dosage: 500MG BID PO X 21 DAYS
     Route: 048
     Dates: start: 20010301
  4. CIPRO [Suspect]
     Indication: PROSTATITIS
     Dosage: 500 BID X 21 DAYS
     Dates: start: 19990812
  5. SEPTRA [Suspect]
     Dosage: BID
     Dates: start: 19990720, end: 19990729

REACTIONS (2)
  - INJURY [None]
  - TENDON RUPTURE [None]
